FAERS Safety Report 9068690 (Version 1)
Quarter: 2013Q1

REPORT INFORMATION
  Report Type: Spontaneous
  Country: US (occurrence: None)
  Receive Date: 20130212
  Receipt Date: 20130212
  Transmission Date: 20140127
  Serious: Yes (Other)
  Sender: FDA-Public Use
  Company Number: None

PATIENT
  Age: 68 Year
  Sex: 0

DRUGS (1)
  1. AFINITOR [Suspect]
     Indication: NEOPLASM MALIGNANT
     Dosage: 10 MG  QD  PO?1 DOSE ONLY
     Route: 048
     Dates: start: 20130201

REACTIONS (5)
  - Oropharyngeal pain [None]
  - Pain in jaw [None]
  - Abdominal pain upper [None]
  - Pyrexia [None]
  - Arthralgia [None]
